FAERS Safety Report 6161622-3 (Version None)
Quarter: 2009Q2

REPORT INFORMATION
  Report Type: 
  Country: None (occurrence: None)
  Receive Date: 20090421
  Receipt Date: 20080912
  Transmission Date: 20091009
  Serious: Yes (Hospitalization)
  Sender: FDA-Public Use
  Company Number: PHHO2008ZA11049

PATIENT
  Sex: Male
  Weight: 16.2 kg

DRUGS (1)
  1. ELIDEL ASM+CRE [Suspect]
     Indication: DERMATITIS ATOPIC
     Dosage: TWICE DAILY
     Route: 061
     Dates: start: 20050112

REACTIONS (6)
  - CELLULITIS [None]
  - ERYTHEMA [None]
  - FALL [None]
  - JOINT INJURY [None]
  - PAIN [None]
  - PYREXIA [None]
